FAERS Safety Report 9705818 (Version 3)
Quarter: 2015Q3

REPORT INFORMATION
  Report Type: Spontaneous
  Country: US (occurrence: US)
  Receive Date: 20131122
  Receipt Date: 20150803
  Transmission Date: 20151125
  Serious: No
  Sender: FDA-Public Use
  Company Number: US-GILEAD-2008-0017935

PATIENT
  Age: 64 Year
  Sex: Female
  Weight: 82.1 kg

DRUGS (11)
  1. GLIPIZIDE. [Concomitant]
     Active Substance: GLIPIZIDE
  2. METAMUCIL [Concomitant]
     Active Substance: PLANTAGO SEED
  3. REMERON SOL-TAB [Concomitant]
  4. CALCIUM + D [Concomitant]
     Active Substance: CALCIUM\VITAMIN D
  5. LETAIRIS [Suspect]
     Active Substance: AMBRISENTAN
     Indication: PULMONARY ARTERIAL HYPERTENSION
     Route: 048
     Dates: start: 20080807
  6. TYLENOL [Concomitant]
     Active Substance: ACETAMINOPHEN
  7. ACCUPRIL [Concomitant]
     Active Substance: QUINAPRIL HYDROCHLORIDE
  8. ATIVAN [Concomitant]
     Active Substance: LORAZEPAM
  9. MAGNESIUM CITRATE SOLUTION [Concomitant]
  10. COLACE [Concomitant]
     Active Substance: DOCUSATE SODIUM
  11. AMOXICILLIN SUSPENSION [Concomitant]
     Route: 048

REACTIONS (2)
  - Palpitations [Recovered/Resolved]
  - Constipation [Unknown]
